FAERS Safety Report 8455025-6 (Version None)
Quarter: 2012Q2

REPORT INFORMATION
  Report Type: 
  Country: None (occurrence: None)
  Receive Date: 20120615
  Receipt Date: 20120615
  Transmission Date: 20120825
  Serious: Yes (Life-Threatening, Hospitalization)
  Sender: FDA-Public Use
  Company Number: None

PATIENT
  Age: 82 Year
  Sex: Male
  Weight: 102.0593 kg

DRUGS (1)
  1. PRADAXA [Suspect]
     Indication: DRUG THERAPY CHANGED
     Dosage: 75 2X DAY
     Dates: start: 20111114, end: 20120211

REACTIONS (8)
  - CONVULSION [None]
  - EYE DISORDER [None]
  - FEELING ABNORMAL [None]
  - MEMORY IMPAIRMENT [None]
  - ABASIA [None]
  - DIZZINESS [None]
  - CEREBROVASCULAR ACCIDENT [None]
  - CONFUSIONAL STATE [None]
